FAERS Safety Report 12725457 (Version 2)
Quarter: 2016Q3

REPORT INFORMATION
  Report Type: Spontaneous
  Country: RO (occurrence: RO)
  Receive Date: 20160908
  Receipt Date: 20160914
  Transmission Date: 20161109
  Serious: Yes (Hospitalization)
  Sender: FDA-Public Use
  Company Number: RO-PFIZER INC-2016418200

PATIENT
  Age: 65 Year
  Sex: Female

DRUGS (3)
  1. GABAPENTIN. [Suspect]
     Active Substance: GABAPENTIN
     Indication: MYOPATHY
  2. SIMVASTATIN. [Suspect]
     Active Substance: SIMVASTATIN
  3. GABAPENTIN. [Suspect]
     Active Substance: GABAPENTIN
     Indication: PERIPHERAL ARTERIAL OCCLUSIVE DISEASE

REACTIONS (4)
  - Muscle spasms [Unknown]
  - Atrioventricular block [Unknown]
  - Blood glucose increased [Unknown]
  - Drug ineffective for unapproved indication [Unknown]
